FAERS Safety Report 17586647 (Version 2)
Quarter: 2020Q2

REPORT INFORMATION
  Report Type: Spontaneous
  Country: US (occurrence: US)
  Receive Date: 20200326
  Receipt Date: 20200501
  Transmission Date: 20200713
  Serious: Yes (Hospitalization)
  Sender: FDA-Public Use
  Company Number: US-ASTRAZENECA-2020SE41219

PATIENT
  Sex: Female

DRUGS (7)
  1. SYMBICORT [Suspect]
     Active Substance: BUDESONIDE\FORMOTEROL FUMARATE DIHYDRATE
     Indication: ASTHMA
     Dosage: 80/4.5 MCG, TWO TIMES A DAY
     Route: 055
  2. NEXIUM [Suspect]
     Active Substance: ESOMEPRAZOLE MAGNESIUM
     Indication: GASTROOESOPHAGEAL REFLUX DISEASE
     Route: 048
  3. SYMBICORT [Suspect]
     Active Substance: BUDESONIDE\FORMOTEROL FUMARATE DIHYDRATE
     Indication: BRONCHITIS
     Dosage: 80/4.5 MCG, TWO TIMES A DAY
     Route: 055
  4. BABY ASPIRIN [Concomitant]
     Active Substance: ASPIRIN
  5. K-DUR [Concomitant]
     Active Substance: POTASSIUM CHLORIDE
  6. NEXIUM [Suspect]
     Active Substance: ESOMEPRAZOLE MAGNESIUM
     Indication: GASTROOESOPHAGEAL REFLUX DISEASE
     Route: 048
  7. DIOVAN [Concomitant]
     Active Substance: VALSARTAN
     Dosage: 160

REACTIONS (9)
  - Sepsis [Unknown]
  - Dysphagia [Unknown]
  - Product dose omission [Unknown]
  - Intentional product misuse [Unknown]
  - Speech disorder [Unknown]
  - Malaise [Unknown]
  - Device issue [Unknown]
  - Cataract [Unknown]
  - Musculoskeletal stiffness [Unknown]
